FAERS Safety Report 16308762 (Version 4)
Quarter: 2019Q3

REPORT INFORMATION
  Report Type: Spontaneous
  Country: US (occurrence: US)
  Receive Date: 20190514
  Receipt Date: 20190819
  Transmission Date: 20191004
  Serious: Yes (Death, Other)
  Sender: FDA-Public Use
  Company Number: US-PFIZER INC-2019196986

PATIENT
  Age: 73 Year
  Sex: Female

DRUGS (9)
  1. OCUVITE [Concomitant]
     Active Substance: VITAMINS
     Indication: EYE DISORDER
  2. LETROZOLE. [Suspect]
     Active Substance: LETROZOLE
     Indication: ANTIOESTROGEN THERAPY
     Dosage: 2.5 MG, 1X/DAY
     Route: 048
     Dates: start: 201903
  3. FEMARA [Concomitant]
     Active Substance: LETROZOLE
     Indication: BREAST CANCER METASTATIC
     Dosage: UNK
     Dates: start: 20190215
  4. CALCIUM [Concomitant]
     Active Substance: CALCIUM
     Indication: SUPPLEMENTATION THERAPY
     Dosage: MAYBE 500MG PROBABLY TAKEN ONCE DAILY
  5. IBRANCE [Suspect]
     Active Substance: PALBOCICLIB
     Dosage: 125 MG, CYCLIC (ONCE DAILY FOR 3 WEEKS ON, THEN 1 WEEK OFF)
     Route: 048
  6. IBRANCE [Suspect]
     Active Substance: PALBOCICLIB
     Dosage: 100 MG, UNK (ONCE DAILY FOR 3 WEEKS ON AND THEN 1 WEEK OFF)
     Dates: end: 20190705
  7. COENZYME Q10 [Concomitant]
     Active Substance: UBIDECARENONE
     Indication: DIETARY SUPPLEMENT PRESCRIBING ERROR
     Dosage: 200 MG, 1X/DAY
  8. VITAMIN D3 [Concomitant]
     Active Substance: CHOLECALCIFEROL
     Indication: MUSCULAR WEAKNESS
     Dosage: 2000 IU, UNK
  9. IBRANCE [Suspect]
     Active Substance: PALBOCICLIB
     Indication: BREAST CANCER METASTATIC
     Dosage: 125 MG, CYCLIC (ONCE A DAY)
     Route: 048
     Dates: start: 20190215, end: 2019

REACTIONS (8)
  - Fatigue [Unknown]
  - Anaemia [Unknown]
  - Thrombocytopenia [Unknown]
  - Monocyte count decreased [Unknown]
  - Neuropathy peripheral [Unknown]
  - Neutropenia [Unknown]
  - Neoplasm progression [Fatal]
  - Bone pain [Unknown]

NARRATIVE: CASE EVENT DATE: 201903
